FAERS Safety Report 22533180 (Version 1)
Quarter: 2023Q2

REPORT INFORMATION
  Report Type: Spontaneous
  Country: US (occurrence: None)
  Receive Date: 20230601
  Receipt Date: 20230601
  Transmission Date: 20230722
  Serious: Yes (Hospitalization, Other)
  Sender: FDA-Public Use
  Company Number: None

PATIENT
  Age: 60 Year
  Sex: Male
  Weight: 123.75 kg

DRUGS (1)
  1. MULTIHANCE [Suspect]
     Active Substance: GADOBENATE DIMEGLUMINE
     Indication: Contrast media deposition
     Dosage: FREQUENCY : AS NEEDED;?
     Route: 042

REACTIONS (4)
  - Chest discomfort [None]
  - Throat tightness [None]
  - Contrast media reaction [None]
  - Hypotension [None]

NARRATIVE: CASE EVENT DATE: 20230526
